FAERS Safety Report 14689078 (Version 1)
Quarter: 2018Q1

REPORT INFORMATION
  Report Type: Report from Study
  Country: CN (occurrence: CN)
  Receive Date: 20180328
  Receipt Date: 20180328
  Transmission Date: 20180509
  Serious: Yes (Other)
  Sender: FDA-Public Use
  Company Number: CN-ACS-001028

PATIENT
  Sex: Female

DRUGS (3)
  1. TOBRADEX [Concomitant]
     Active Substance: DEXAMETHASONE\TOBRAMYCIN
     Route: 061
  2. TOBRADEX [Concomitant]
     Active Substance: DEXAMETHASONE\TOBRAMYCIN
     Dosage: AT NIGHT FOR 1 WEEK
     Route: 061
  3. CEFUROXIME. [Suspect]
     Active Substance: CEFUROXIME
     Indication: PROPHYLAXIS
     Dosage: 1MG/0.1ML ANTERIOR CHAMBER INJECTION
     Route: 031

REACTIONS (2)
  - Off label use [Recovered/Resolved]
  - Retinopathy [Recovered/Resolved]
